FAERS Safety Report 9542011 (Version 1)
Quarter: 2013Q3

REPORT INFORMATION
  Report Type: Spontaneous
  Country: BR (occurrence: BR)
  Receive Date: 20130923
  Receipt Date: 20130923
  Transmission Date: 20140515
  Serious: Yes (Hospitalization)
  Sender: FDA-Public Use
  Company Number: BR-JNJFOC-20130909851

PATIENT
  Age: 56 Year
  Sex: Female
  Weight: 78 kg

DRUGS (5)
  1. SIMPONI [Suspect]
     Indication: RHEUMATOID ARTHRITIS
     Route: 058
     Dates: start: 201309
  2. SIMPONI [Suspect]
     Indication: RHEUMATOID ARTHRITIS
     Route: 058
     Dates: start: 2013, end: 201307
  3. METHOTREXATE [Suspect]
     Indication: RHEUMATOID ARTHRITIS
     Route: 065
  4. OMEPRAZOLE [Concomitant]
     Indication: GASTRIC DISORDER
     Route: 065
  5. AMLODIPINE BESYLATE W/BENAZEPRIL [Concomitant]
     Indication: HYPERTENSION
     Route: 065

REACTIONS (4)
  - Meningitis bacterial [Recovered/Resolved]
  - Weight decreased [Not Recovered/Not Resolved]
  - Device malfunction [Unknown]
  - Drug dose omission [Unknown]
